FAERS Safety Report 9596981 (Version 1)
Quarter: 2013Q4

REPORT INFORMATION
  Report Type: Spontaneous
  Country: US (occurrence: US)
  Receive Date: 20131004
  Receipt Date: 20131004
  Transmission Date: 20140711
  Serious: Yes (Death, Hospitalization, Other)
  Sender: FDA-Public Use
  Company Number: US-BAXTER-2013BAX038407

PATIENT
  Age: 52 Year
  Sex: Female

DRUGS (3)
  1. DIANEAL LOW CALCIUM [Suspect]
     Indication: PERITONEAL DIALYSIS
     Route: 033
     Dates: start: 20111104, end: 20130503
  2. DIANEAL LOW CALCIUM [Suspect]
     Indication: PERITONEAL DIALYSIS
     Route: 033
     Dates: start: 20111104, end: 20130503
  3. EXTRANEAL [Suspect]
     Indication: PERITONEAL DIALYSIS
     Route: 033
     Dates: start: 20111104, end: 20130503

REACTIONS (7)
  - Cardiac failure [Fatal]
  - Pneumonia [Fatal]
  - Cardiac arrest [Unknown]
  - Brain injury [Unknown]
  - Incision site infection [Unknown]
  - Sepsis [Unknown]
  - Cardiac disorder [Unknown]
